FAERS Safety Report 4406567-1 (Version None)
Quarter: 2004Q3

REPORT INFORMATION
  Report Type: 
  Country: None (occurrence: None)
  Receive Date: 20040723
  Receipt Date: 20040720
  Transmission Date: 20050211
  Serious: Yes (Death)
  Sender: FDA-Public Use
  Company Number: US-GLAXOSMITHKLINE-A0519037A

PATIENT
  Age: 16 Year
  Sex: Male

DRUGS (4)
  1. PAXIL [Suspect]
     Indication: DEPRESSION
     Dosage: 60MG PER DAY
     Route: 048
     Dates: start: 20010501, end: 20020317
  2. WELLBUTRIN SR [Concomitant]
  3. ALCOHOL [Concomitant]
  4. MARIJUANA [Concomitant]

REACTIONS (1)
  - COMPLETED SUICIDE [None]
